FAERS Safety Report 19282300 (Version 1)
Quarter: 2021Q2

REPORT INFORMATION
  Report Type: Spontaneous
  Country: US (occurrence: US)
  Receive Date: 20210520
  Receipt Date: 20210520
  Transmission Date: 20210717
  Serious: Yes (Hospitalization)
  Sender: FDA-Public Use
  Company Number: US-JNJFOC-20210525060

PATIENT
  Age: 15 Year
  Sex: Female

DRUGS (4)
  1. ACETAZOLAMIDE. [Suspect]
     Active Substance: ACETAZOLAMIDE
     Indication: MENINGITIS ASEPTIC
     Route: 065
  2. ACETAZOLAMIDE. [Suspect]
     Active Substance: ACETAZOLAMIDE
     Route: 065
  3. FUROSEMIDE. [Suspect]
     Active Substance: FUROSEMIDE
     Indication: MENINGITIS ASEPTIC
     Dosage: EVERY OTHER DAY (40 MG)
     Route: 065
  4. TOPIRAMATE. [Suspect]
     Active Substance: TOPIRAMATE
     Indication: MENINGITIS ASEPTIC
     Dosage: AT BEDTIME
     Route: 048

REACTIONS (3)
  - Product use in unapproved indication [Unknown]
  - Meningitis aseptic [Unknown]
  - Off label use [Unknown]
